FAERS Safety Report 5247963-2 (Version None)
Quarter: 2007Q1

REPORT INFORMATION
  Report Type: 
  Country: None (occurrence: None)
  Receive Date: 20070227
  Receipt Date: 20070226
  Transmission Date: 20070707
  Serious: Yes (Hospitalization, Disabling, Other)
  Sender: FDA-Public Use
  Company Number: GR-BRISTOL-MYERS SQUIBB COMPANY-13671946

PATIENT
  Age: 57 Year
  Sex: Female
  Weight: 38 kg

DRUGS (4)
  1. COUMADIN [Suspect]
     Indication: THROMBOSIS
     Dates: end: 20070106
  2. CAELYX [Suspect]
     Indication: OVARIAN EPITHELIAL CANCER
     Route: 042
     Dates: start: 20061227, end: 20061227
  3. ASPIRIN [Concomitant]
  4. ACENOCOUMAROL [Concomitant]
     Indication: VENA CAVA THROMBOSIS
     Dates: start: 20061227, end: 20070106

REACTIONS (6)
  - DRUG INEFFECTIVE [None]
  - GASTROINTESTINAL HAEMORRHAGE [None]
  - HEMIPARESIS [None]
  - INTERNATIONAL NORMALISED RATIO ABNORMAL [None]
  - ISCHAEMIC STROKE [None]
  - PERFORMANCE STATUS DECREASED [None]
